FAERS Safety Report 13141368 (Version 1)
Quarter: 2017Q1

REPORT INFORMATION
  Report Type: Spontaneous
  Country: US (occurrence: US)
  Receive Date: 20170124
  Receipt Date: 20170124
  Transmission Date: 20170428
  Serious: No
  Sender: FDA-Public Use
  Company Number: US-MYLANLABS-2016M1047844

PATIENT
  Age: 60 Year
  Sex: Female
  Weight: 56.69 kg

DRUGS (4)
  1. PREDNISONE TABLETS USP [Suspect]
     Active Substance: PREDNISONE
     Indication: LUNG DISORDER
     Dosage: 10 MG, QID FOR 4 DAYS
     Route: 048
     Dates: start: 201610, end: 201610
  2. PREDNISONE TABLETS USP [Suspect]
     Active Substance: PREDNISONE
     Dosage: 10 MG, TID FOR 4 DAYS
     Route: 048
     Dates: start: 201610, end: 20161101
  3. ZITHROMAX [Suspect]
     Active Substance: AZITHROMYCIN DIHYDRATE
     Indication: LUNG DISORDER
     Dosage: 500 MG, QD
     Route: 048
     Dates: start: 201610, end: 201610
  4. ZITHROMAX [Suspect]
     Active Substance: AZITHROMYCIN DIHYDRATE
     Dosage: 250 MG, QD
     Route: 048
     Dates: start: 201610

REACTIONS (8)
  - Abdominal discomfort [Unknown]
  - Reaction to drug excipients [Not Recovered/Not Resolved]
  - Feeling abnormal [Not Recovered/Not Resolved]
  - Insomnia [Not Recovered/Not Resolved]
  - Fatigue [Not Recovered/Not Resolved]
  - Flatulence [Not Recovered/Not Resolved]
  - Abdominal distension [Not Recovered/Not Resolved]
  - Gallbladder disorder [Not Recovered/Not Resolved]

NARRATIVE: CASE EVENT DATE: 201610
